FAERS Safety Report 6410874-0 (Version None)
Quarter: 2009Q4

REPORT INFORMATION
  Report Type: 
  Country: None (occurrence: None)
  Receive Date: 20091022
  Receipt Date: 20091013
  Transmission Date: 20100525
  Serious: Yes (Other)
  Sender: FDA-Public Use
  Company Number: PHEH2009US13793

PATIENT
  Sex: Female

DRUGS (1)
  1. EXELON [Suspect]
     Indication: DEMENTIA
     Dosage: 9.5MG, 1 PATCH DAILY
     Dates: start: 20090728, end: 20091007

REACTIONS (5)
  - ERYTHEMA [None]
  - HAEMORRHAGE [None]
  - INSOMNIA [None]
  - PRURITUS [None]
  - SCRATCH [None]
